FAERS Safety Report 5983570-1 (Version None)
Quarter: 2008Q4

REPORT INFORMATION
  Report Type: 
  Country: None (occurrence: None)
  Receive Date: 20081208
  Receipt Date: 20081126
  Transmission Date: 20090506
  Serious: Yes (Other)
  Sender: FDA-Public Use
  Company Number: US-ROCHE-599549

PATIENT
  Age: 54 Year
  Sex: Female

DRUGS (1)
  1. BONIVA [Suspect]
     Route: 048
     Dates: start: 20080914

REACTIONS (7)
  - ANXIETY [None]
  - APHAGIA [None]
  - BONE PAIN [None]
  - DEPRESSION [None]
  - DYSPNOEA [None]
  - NEUROMA [None]
  - WEIGHT DECREASED [None]
